FAERS Safety Report 9307024 (Version 4)
Quarter: 2014Q2

REPORT INFORMATION
  Report Type: Spontaneous
  Country: US (occurrence: US)
  Receive Date: 20130523
  Receipt Date: 20140626
  Transmission Date: 20141212
  Serious: No
  Sender: FDA-Public Use
  Company Number: US-009507513-1305USA012257

PATIENT
  Sex: Male
  Weight: 90.25 kg

DRUGS (1)
  1. PROPECIA [Suspect]
     Indication: ALOPECIA
     Dosage: 1 MG, UNK
     Route: 048
     Dates: start: 199809

REACTIONS (20)
  - Sexual dysfunction [Not Recovered/Not Resolved]
  - Erectile dysfunction [Not Recovered/Not Resolved]
  - Genital burning sensation [Unknown]
  - Ejaculation disorder [Unknown]
  - Penis injury [Unknown]
  - Hormone level abnormal [Unknown]
  - Brain injury [Unknown]
  - Painful erection [Unknown]
  - Back pain [Unknown]
  - Hypothyroidism [Unknown]
  - Type 2 diabetes mellitus [Unknown]
  - Hypertension [Unknown]
  - Tendonitis [Unknown]
  - Osteoarthritis [Unknown]
  - Vitamin D deficiency [Unknown]
  - Hyperlipidaemia [Unknown]
  - Bursitis [Unknown]
  - Carotid artery stenosis [Unknown]
  - Renal artery stenosis [Unknown]
  - Coronary artery disease [Unknown]
